FAERS Safety Report 23402732 (Version 1)
Quarter: 2024Q1

REPORT INFORMATION
  Report Type: Spontaneous
  Country: FR (occurrence: FR)
  Receive Date: 20240115
  Receipt Date: 20240115
  Transmission Date: 20240409
  Serious: Yes (Hospitalization)
  Sender: FDA-Public Use
  Company Number: None

PATIENT
  Age: 15 Year
  Sex: Female
  Weight: 46.5 kg

DRUGS (17)
  1. LINEZOLID [Suspect]
     Active Substance: LINEZOLID
     Indication: Staphylococcal infection
     Dosage: UNK
     Dates: start: 20230606, end: 20230617
  2. DIAZEPAM [Suspect]
     Active Substance: DIAZEPAM
     Indication: Anxiolytic therapy
     Dosage: UNK
     Dates: start: 20230511, end: 20230604
  3. IOMERON [Suspect]
     Active Substance: IOMEPROL
     Indication: Computerised tomogram
     Dosage: 90 ML, SINGLE
     Route: 042
     Dates: start: 20230508, end: 20230508
  4. IOMERON [Suspect]
     Active Substance: IOMEPROL
     Dosage: 80 ML, SINGLE
     Route: 042
     Dates: start: 20230522, end: 20230522
  5. IOMERON [Suspect]
     Active Substance: IOMEPROL
     Dosage: 70 ML, SINGLE
     Route: 042
     Dates: start: 20230526, end: 20230526
  6. IOMERON [Suspect]
     Active Substance: IOMEPROL
     Dosage: 80 ML, SINGLE
     Route: 042
     Dates: start: 20230514, end: 20230514
  7. IOMERON [Suspect]
     Active Substance: IOMEPROL
     Dosage: 55 ML, SINGLE
     Route: 042
     Dates: start: 20230607, end: 20230607
  8. IOMERON [Suspect]
     Active Substance: IOMEPROL
     Dosage: 70 ML, SINGLE
     Route: 042
     Dates: start: 20230528, end: 20230528
  9. IOMERON [Suspect]
     Active Substance: IOMEPROL
     Indication: Computerised tomogram
     Dosage: 150 ML, SINGLE
     Route: 042
     Dates: start: 20230609, end: 20230609
  10. OMEPRAZOLE [Suspect]
     Active Substance: OMEPRAZOLE
     Indication: Gastrooesophageal reflux disease
     Dosage: 80 MG, 1X/DAY
     Route: 042
     Dates: start: 20230518, end: 20230625
  11. PIPERACILLIN SODIUM\TAZOBACTAM SODIUM [Suspect]
     Active Substance: PIPERACILLIN SODIUM\TAZOBACTAM SODIUM
     Indication: Inflammation
     Dosage: 3 DF, DAILY
     Route: 042
     Dates: start: 20230517, end: 20230615
  12. IOBITRIDOL [Suspect]
     Active Substance: IOBITRIDOL
     Indication: Computerised tomogram
     Dosage: 60 ML, SINGLE
     Route: 042
     Dates: start: 20230517, end: 20230517
  13. IOBITRIDOL [Suspect]
     Active Substance: IOBITRIDOL
     Dosage: 70 ML, SINGLE
     Route: 042
     Dates: start: 20230518, end: 20230518
  14. FLUCONAZOLE [Concomitant]
     Active Substance: FLUCONAZOLE
     Indication: Infection
     Dosage: 300 MG, DAILY
     Route: 042
     Dates: start: 20230530, end: 20230621
  15. ACETAMINOPHEN [Concomitant]
     Active Substance: ACETAMINOPHEN
     Dosage: UNK
  16. FLUTICASONE FUROATE\VILANTEROL TRIFENATATE [Concomitant]
     Active Substance: FLUTICASONE FUROATE\VILANTEROL TRIFENATATE
     Dosage: UNK
  17. VANCOMYCIN HYDROCHLORIDE [Concomitant]
     Active Substance: VANCOMYCIN HYDROCHLORIDE
     Dosage: UNK

REACTIONS (1)
  - Drug reaction with eosinophilia and systemic symptoms [Recovered/Resolved]

NARRATIVE: CASE EVENT DATE: 20230612
